FAERS Safety Report 20351813 (Version 1)
Quarter: 2022Q1

REPORT INFORMATION
  Report Type: Report from Study
  Country: US (occurrence: US)
  Receive Date: 20220119
  Receipt Date: 20220119
  Transmission Date: 20220423
  Serious: Yes (Death)
  Sender: FDA-Public Use
  Company Number: US-TG THERAPEUTICS INC.-TGT002340

PATIENT
  Age: 64 Year
  Sex: Male

DRUGS (2)
  1. UMBRALISIB [Suspect]
     Active Substance: UMBRALISIB
     Indication: Diffuse large B-cell lymphoma
  2. UMBRALISIB [Suspect]
     Active Substance: UMBRALISIB
     Indication: Chronic lymphocytic leukaemia

REACTIONS (1)
  - Disease progression [Fatal]

NARRATIVE: CASE EVENT DATE: 20211126
